FAERS Safety Report 6747186-1 (Version None)
Quarter: 2010Q2

REPORT INFORMATION
  Report Type: 
  Country: None (occurrence: None)
  Receive Date: 20100526
  Receipt Date: 20100512
  Transmission Date: 20101027
  Serious: Yes (Other)
  Sender: FDA-Public Use
  Company Number: 2010AP001001

PATIENT
  Age: 20 Year
  Sex: Male

DRUGS (3)
  1. RISPERIDONE [Suspect]
     Indication: AGITATION
     Dosage: 0.5 MG; BID; PO
     Route: 048
     Dates: start: 20080201, end: 20100319
  2. SERTRALINE HCL [Suspect]
     Indication: ANXIETY
     Dosage: 100 MG;QD; PO
     Route: 048
  3. SERTRALINE HCL [Suspect]
     Indication: DEPRESSION
     Dosage: 100 MG;QD; PO
     Route: 048

REACTIONS (2)
  - DRUG INTERACTION [None]
  - THROMBOCYTOPENIA [None]
